FAERS Safety Report 9760886 (Version 1)
Quarter: 2013Q4

REPORT INFORMATION
  Report Type: Spontaneous
  Country: US (occurrence: US)
  Receive Date: 20131216
  Receipt Date: 20131216
  Transmission Date: 20140711
  Serious: Yes (Hospitalization, Other)
  Sender: FDA-Public Use
  Company Number: US-BAYER-2013-151296

PATIENT
  Age: 43 Year
  Sex: Male

DRUGS (3)
  1. ALEVE CAPLET [Suspect]
  2. COPAXONE [Suspect]
     Indication: MULTIPLE SCLEROSIS
     Dosage: UNK
     Dates: start: 20130919
  3. ADVIL [Suspect]
     Dosage: UNK

REACTIONS (12)
  - Convulsion [Recovered/Resolved]
  - Loss of consciousness [Recovered/Resolved]
  - Tremor [Recovered/Resolved]
  - Gastrointestinal haemorrhage [Unknown]
  - Haemoglobin decreased [Unknown]
  - Red blood cell count decreased [Unknown]
  - Dyspepsia [None]
  - Gastrooesophageal reflux disease [None]
  - Chest pain [None]
  - Visual impairment [None]
  - Dizziness [None]
  - Balance disorder [None]
